FAERS Safety Report 11566910 (Version 1)
Quarter: 2015Q3

REPORT INFORMATION
  Report Type: Spontaneous
  Country: US (occurrence: US)
  Receive Date: 20150916
  Receipt Date: 20150916
  Transmission Date: 20151125
  Serious: No
  Sender: FDA-Public Use
  Company Number: US-ELI_LILLY_AND_COMPANY-US200906006769

PATIENT
  Age: 88 Year
  Sex: Female

DRUGS (6)
  1. CENTRUM SILVER [Concomitant]
     Active Substance: VITAMINS
  2. LIPITOR [Concomitant]
     Active Substance: ATORVASTATIN CALCIUM
  3. PREVACID [Concomitant]
     Active Substance: LANSOPRAZOLE
  4. ASPIRIN                                 /SCH/ [Concomitant]
     Dosage: 81 MG, 2/D
  5. OSCAL [Concomitant]
     Active Substance: CALCIUM CARBONATE
  6. FORTEO [Suspect]
     Active Substance: TERIPARATIDE

REACTIONS (7)
  - Pain in extremity [Unknown]
  - Arthralgia [Unknown]
  - Myalgia [Unknown]
  - Sinus disorder [Unknown]
  - Back pain [Unknown]
  - Cholecystectomy [Unknown]
  - Muscle spasms [Unknown]

NARRATIVE: CASE EVENT DATE: 200904
